FAERS Safety Report 8623902-9 (Version None)
Quarter: 2012Q3

REPORT INFORMATION
  Report Type: 
  Country: None (occurrence: None)
  Receive Date: 20120827
  Receipt Date: 20120815
  Transmission Date: 20120928
  Serious: Yes (Hospitalization, Other)
  Sender: FDA-Public Use
  Company Number: PHHY2012CH073198

PATIENT
  Age: 74 Year
  Sex: Female
  Weight: 103 kg

DRUGS (9)
  1. OLFEN [Suspect]
     Indication: BACK PAIN
     Dosage: 75 MG PER DAY
     Route: 048
     Dates: start: 20120701, end: 20120715
  2. MARCUMAR [Interacting]
     Indication: PROPHYLAXIS
     Dosage: 1 DF, PRN
     Route: 048
     Dates: start: 20120413, end: 20120715
  3. REPAGLINIDE [Concomitant]
     Dosage: 2 MG, TID
     Route: 058
     Dates: end: 20120715
  4. REPAGLINIDE [Concomitant]
     Dosage: UNK UKN, UNK
     Dates: start: 20120718
  5. TILUR [Interacting]
     Indication: BACK PAIN
     Dosage: 75 MG
     Route: 048
     Dates: end: 20120701
  6. METOPROLOL TARTRATE [Concomitant]
     Dosage: UNK UKN, UNK
     Dates: start: 20120717
  7. OMEPRAZOLE [Concomitant]
     Dosage: 20 MG, QD
     Route: 048
     Dates: end: 20120715
  8. OLFEN [Interacting]
     Dosage: UNK UKN, UNK
  9. METOPROLOL TARTRATE [Concomitant]
     Dosage: 50 MG, QD
     Dates: end: 20120715

REACTIONS (7)
  - GASTROINTESTINAL HAEMORRHAGE [None]
  - MELAENA [None]
  - HAEMORRHAGIC ANAEMIA [None]
  - HAEMATEMESIS [None]
  - DRUG INTERACTION [None]
  - HEPATOCELLULAR INJURY [None]
  - GASTRIC POLYPS [None]
